FAERS Safety Report 9372311 (Version 3)
Quarter: 2013Q3

REPORT INFORMATION
  Report Type: Spontaneous
  Country: US (occurrence: None)
  Receive Date: 20130613
  Receipt Date: 20130715
  Transmission Date: 20140515
  Serious: Yes (Other)
  Sender: FDA-Public Use
  Company Number: 2011028545

PATIENT
  Age: 30 Year
  Sex: Female

DRUGS (1)
  1. ZEMAIRA [Suspect]
     Indication: ALPHA-1 ANTI-TRYPSIN DEFICIENCY
     Dosage: WEEKLY INFUSION INTRAVENOUS (NOT OTHERWISE SPECIFIED)
     Route: 042
     Dates: start: 201101

REACTIONS (12)
  - Influenza like illness [None]
  - Hyperhidrosis [None]
  - Fatigue [None]
  - Pain [None]
  - Sinusitis [None]
  - Infusion related reaction [None]
  - Asthenia [None]
  - Adrenal insufficiency [None]
  - Bedridden [None]
  - Bronchitis chronic [None]
  - Product substitution issue [None]
  - Adverse drug reaction [None]
